FAERS Safety Report 5398982-7 (Version None)
Quarter: 2007Q3

REPORT INFORMATION
  Report Type: 
  Country: None (occurrence: None)
  Receive Date: 20070727
  Receipt Date: 20070716
  Transmission Date: 20080115
  Serious: Yes (Life-Threatening, Hospitalization, Disabling)
  Sender: FDA-Public Use
  Company Number: FR-AMGEN-UK235079

PATIENT
  Sex: Female

DRUGS (9)
  1. NEUPOGEN [Suspect]
     Indication: NEUTROPENIA
     Route: 042
     Dates: start: 20061023
  2. CYCLOPHOSPHAMIDE [Suspect]
     Route: 042
     Dates: start: 20060412, end: 20061123
  3. RITUXAN [Suspect]
     Dates: start: 20060412, end: 20061123
  4. FLUDARA [Suspect]
     Dates: start: 20060823, end: 20061123
  5. BACTRIM [Concomitant]
  6. XANAX [Concomitant]
  7. ZOLPIDEM TARTRATE [Concomitant]
  8. VALACYCLOVIR HCL [Concomitant]
  9. NEULASTA [Concomitant]

REACTIONS (2)
  - LUNG DISORDER [None]
  - PULMONARY FIBROSIS [None]
